FAERS Safety Report 8871010 (Version 1)
Quarter: 2012Q4

REPORT INFORMATION
  Report Type: 
  Country: US (occurrence: None)
  Receive Date: 20121025
  Receipt Date: 20121025
  Transmission Date: 20130627
  Serious: Yes (Hospitalization, Other)
  Sender: FDA-Public Use
  Company Number: ACET20120023

PATIENT
  Age: 57 Year
  Sex: Male

DRUGS (3)
  1. Q-PAP TABLETS 325MG (PARACETAMOL) (TABLETS) [Suspect]
     Indication: PRODUCT USED FOR UNKNOWN INDICATION
     Route: 048
  2. ASPIRIN [Suspect]
     Indication: PRODUCT USED FOR UNKNOWN INDICATION
     Route: 048
  3. GLYBURIDE [Suspect]
     Indication: PRODUCT USED FOR UNKNOWN INDICATION
     Route: 048

REACTIONS (5)
  - Potentiating drug interaction [None]
  - Overdose [None]
  - Hypoglycaemia [None]
  - Unresponsive to stimuli [None]
  - Liver injury [None]
